FAERS Safety Report 24188067 (Version 2)
Quarter: 2024Q3

REPORT INFORMATION
  Report Type: Spontaneous
  Country: IL (occurrence: IL)
  Receive Date: 20240808
  Receipt Date: 20240910
  Transmission Date: 20241016
  Serious: Yes (Life-Threatening, Hospitalization, Other)
  Sender: UNITED THERAPEUTICS
  Company Number: IL-UNITED THERAPEUTICS-UNT-2024-024208

PATIENT
  Age: 50 Year
  Sex: Female

DRUGS (2)
  1. REMODULIN [Suspect]
     Active Substance: TREPROSTINIL
     Indication: Pulmonary arterial hypertension
     Dosage: UNK (AT INFUSION RATE OF 0.042 ML/HR), CONTINUING
  2. REMODULIN [Suspect]
     Active Substance: TREPROSTINIL
     Dosage: UNK, CONTINUING
     Dates: start: 20240103, end: 20240826

REACTIONS (1)
  - Pulmonary arterial hypertension [Unknown]

NARRATIVE: CASE EVENT DATE: 20240701
